FAERS Safety Report 10172730 (Version 2)
Quarter: 2014Q2

REPORT INFORMATION
  Report Type: Spontaneous
  Country: US (occurrence: None)
  Receive Date: 20140513
  Receipt Date: 20140606
  Transmission Date: 20141212
  Serious: Yes (Hospitalization)
  Sender: FDA-Public Use
  Company Number: QSC-2014-0288

PATIENT
  Age: 56 Year
  Sex: Male
  Weight: 84 kg

DRUGS (4)
  1. H.P. ACTHAR GEL [Suspect]
     Indication: MULTIPLE SCLEROSIS
     Route: 058
     Dates: start: 20140325, end: 20140327
  2. SYNTHROID (LEVOTHYROXINE SODIUM) [Concomitant]
  3. COPAXONE [Concomitant]
  4. CHOLESTYRAMINE [Concomitant]

REACTIONS (6)
  - Palpitations [None]
  - Chest discomfort [None]
  - Atrial fibrillation [None]
  - Mitral valve incompetence [None]
  - Aortic valve incompetence [None]
  - Chest pain [None]
